FAERS Safety Report 15127850 (Version 2)
Quarter: 2018Q3

REPORT INFORMATION
  Report Type: Report from Study
  Country: MX (occurrence: MX)
  Receive Date: 20180710
  Receipt Date: 20180731
  Transmission Date: 20181010
  Serious: Yes (Death, Other)
  Sender: FDA-Public Use
  Company Number: MX-CELGENEUS-MEX-20180507419

PATIENT
  Age: 75 Year
  Sex: Male

DRUGS (2)
  1. VIDAZA [Suspect]
     Active Substance: AZACITIDINE
     Dosage: 100 MILLIGRAM
     Route: 058
     Dates: start: 2018, end: 20180528
  2. VIDAZA [Suspect]
     Active Substance: AZACITIDINE
     Indication: MYELODYSPLASTIC SYNDROME
     Dosage: 80 MILLIGRAM
     Route: 058
     Dates: start: 20180430, end: 2018

REACTIONS (8)
  - Pyrexia [Unknown]
  - Hyperhidrosis [Unknown]
  - Vomiting [Unknown]
  - Unevaluable event [Unknown]
  - Constipation [Unknown]
  - Injection site pain [Recovering/Resolving]
  - Fatigue [Unknown]
  - Death [Fatal]

NARRATIVE: CASE EVENT DATE: 201804
